FAERS Safety Report 23283324 (Version 3)
Quarter: 2024Q1

REPORT INFORMATION
  Report Type: Report from Study
  Country: BR (occurrence: BR)
  Receive Date: 20231211
  Receipt Date: 20240105
  Transmission Date: 20240410
  Serious: Yes (Other)
  Sender: FDA-Public Use
  Company Number: BR-MYLANLABS-2023M1130892

PATIENT
  Sex: Male
  Weight: 85 kg

DRUGS (2)
  1. VENLAFAXINE HYDROCHLORIDE [Suspect]
     Active Substance: VENLAFAXINE HYDROCHLORIDE
     Indication: Depression
     Dosage: 150 MILLIGRAM, QD
     Route: 048
  2. VENLAFAXINE HYDROCHLORIDE [Suspect]
     Active Substance: VENLAFAXINE HYDROCHLORIDE
     Dosage: 75 MILLIGRAM, QD (START DATE: 05-NOV-2023)
     Route: 048
     Dates: start: 20231105

REACTIONS (9)
  - Suicide attempt [Not Recovered/Not Resolved]
  - Hallucination, auditory [Unknown]
  - Mental disability [Unknown]
  - Fasciitis [Not Recovered/Not Resolved]
  - Wrong schedule [Not Recovered/Not Resolved]
  - Product residue present [Recovered/Resolved]
  - Anxiety [Not Recovered/Not Resolved]
  - Insomnia [Not Recovered/Not Resolved]
  - Weight increased [Unknown]

NARRATIVE: CASE EVENT DATE: 20190101
